FAERS Safety Report 8008968-1 (Version None)
Quarter: 2011Q4

REPORT INFORMATION
  Report Type: 
  Country: None (occurrence: None)
  Receive Date: 20111227
  Receipt Date: 20111221
  Transmission Date: 20120403
  Serious: No
  Sender: FDA-Public Use
  Company Number: US-PFIZER INC-2011311969

PATIENT
  Sex: Female
  Weight: 79 kg

DRUGS (6)
  1. LYRICA [Suspect]
     Indication: FIBROMYALGIA
     Dosage: 50 MG, UNK
     Dates: start: 20110101, end: 20111001
  2. SOMA [Concomitant]
     Indication: PAIN
     Dosage: 350 MG, AS NEEDED
  3. LYRICA [Suspect]
     Dosage: 100 MG IN MORNING AND 200 MG AT NIGHT
     Dates: start: 20111001
  4. MOTRIN [Concomitant]
     Indication: PAIN
     Dosage: UNK
  5. LUNESTA [Concomitant]
     Dosage: 3 MG, UNK
     Dates: start: 20100101
  6. CYMBALTA [Concomitant]
     Indication: FIBROMYALGIA
     Dosage: UNK

REACTIONS (1)
  - ALOPECIA [None]
